FAERS Safety Report 8250023-X (Version None)
Quarter: 2012Q2

REPORT INFORMATION
  Report Type: 
  Country: None (occurrence: None)
  Receive Date: 20120402
  Receipt Date: 20120323
  Transmission Date: 20120825
  Serious: Yes (Hospitalization)
  Sender: FDA-Public Use
  Company Number: CA-ELI_LILLY_AND_COMPANY-CA201202006909

PATIENT
  Age: 67 Year
  Sex: Female

DRUGS (14)
  1. OXYCONTIN [Concomitant]
  2. VITAMIN D [Concomitant]
  3. FUROSEMIDE [Concomitant]
  4. FORTEO [Suspect]
     Dosage: 20 UG, QD
     Route: 058
     Dates: start: 20120323
  5. METOCLOP [Concomitant]
  6. GABAPENTIN [Concomitant]
  7. PANTOPRAZOLE SODIUM [Concomitant]
  8. ASPIRIN [Concomitant]
     Dosage: 81 MG, UNK
  9. FORTEO [Suspect]
     Indication: OSTEOPOROSIS
     Dosage: 20 UG, QD
     Route: 058
     Dates: start: 20110726, end: 20120217
  10. OXYCET [Concomitant]
  11. PREDNISONE TAB [Concomitant]
  12. ATACAND [Concomitant]
  13. METFORMIN HCL [Concomitant]
  14. BACLOFEN [Concomitant]

REACTIONS (2)
  - PYREXIA [None]
  - LOWER RESPIRATORY TRACT INFECTION [None]
